FAERS Safety Report 12304985 (Version 1)
Quarter: 2016Q2

REPORT INFORMATION
  Report Type: Spontaneous
  Country: US (occurrence: None)
  Receive Date: 20160425
  Receipt Date: 20160425
  Transmission Date: 20160815
  Serious: Yes (Hospitalization)
  Sender: FDA-Public Use
  Company Number: None

PATIENT
  Age: 63 Year
  Sex: Female
  Weight: 61.78 kg

DRUGS (2)
  1. CARBOPLATIN. [Suspect]
     Active Substance: CARBOPLATIN
     Dates: end: 20140523
  2. TAXOL [Suspect]
     Active Substance: PACLITAXEL
     Dates: end: 20140523

REACTIONS (4)
  - Hypokalaemia [None]
  - Fatigue [None]
  - Hyponatraemia [None]
  - Nausea [None]

NARRATIVE: CASE EVENT DATE: 20140530
